FAERS Safety Report 9033982 (Version 1)
Quarter: 2013Q1

REPORT INFORMATION
  Report Type: Spontaneous
  Country: US (occurrence: US)
  Receive Date: 20130128
  Receipt Date: 20130128
  Transmission Date: 20140127
  Serious: Yes (Hospitalization)
  Sender: FDA-Public Use
  Company Number: US-AMGEN-USASP2012064808

PATIENT
  Age: 66 Year
  Sex: Female

DRUGS (12)
  1. ENBREL [Suspect]
     Indication: RHEUMATOID ARTHRITIS
     Dosage: 50 MG, QWK
     Route: 058
     Dates: start: 2007
  2. MIRTAZAPIN [Concomitant]
     Dosage: 15 MG, UNK
  3. PREDNISONE [Concomitant]
     Dosage: 2.5 MG, UNK
  4. LIPITOR [Concomitant]
     Dosage: 40 MG, UNK
  5. CARVEDILOL [Concomitant]
     Dosage: 3.125 MG, UNK
  6. LISINOPRIL [Concomitant]
     Dosage: 2.5 MG, UNK
  7. ALPRAZOLAM [Concomitant]
     Dosage: 1 MG, UNK
  8. PLAVIX [Concomitant]
     Dosage: 75 MG, UNK
  9. ASPIRIN [Concomitant]
     Dosage: 81 MG, EC
  10. BYETTA [Concomitant]
     Dosage: 10 MUG, UNK
  11. METFORMIN [Concomitant]
     Dosage: 1000 MG,  ER UNK
  12. VITAMIN D /00107901/ [Concomitant]
     Dosage: 400 UNK, UNK

REACTIONS (3)
  - Dehydration [Unknown]
  - Joint swelling [Unknown]
  - Blood glucose increased [Unknown]
